APPROVED DRUG PRODUCT: BUTALBITAL, ASPIRIN, CAFFEINE, AND CODEINE PHOSPHATE
Active Ingredient: ASPIRIN; BUTALBITAL; CAFFEINE; CODEINE PHOSPHATE
Strength: 325MG;50MG;40MG;30MG
Dosage Form/Route: CAPSULE;ORAL
Application: A075231 | Product #001 | TE Code: AB
Applicant: LGM PHARMA SOLUTIONS LLC
Approved: Nov 30, 2001 | RLD: No | RS: No | Type: RX